FAERS Safety Report 6709878-X (Version None)
Quarter: 2010Q2

REPORT INFORMATION
  Report Type: 
  Country: None (occurrence: None)
  Receive Date: 20100503
  Receipt Date: 20100503
  Transmission Date: 20101027
  Serious: Yes (Other)
  Sender: FDA-Public Use
  Company Number: None

PATIENT
  Age: 11 Month
  Sex: Male
  Weight: 9.9791 kg

DRUGS (1)
  1. CONCENTRATED TYLENOL INFANT DROPS [Suspect]
     Indication: ANTIPYRESIS
     Dosage: 0.8 ML ONCE PO
     Route: 048
     Dates: start: 20090701, end: 20090701

REACTIONS (3)
  - ADVERSE REACTION [None]
  - BODY TEMPERATURE DECREASED [None]
  - PRODUCT QUALITY ISSUE [None]
